FAERS Safety Report 9009540 (Version 1)
Quarter: 2013Q1

REPORT INFORMATION
  Report Type: Spontaneous
  Country: FR (occurrence: FR)
  Receive Date: 20130110
  Receipt Date: 20130110
  Transmission Date: 20140127
  Serious: Yes (Hospitalization)
  Sender: FDA-Public Use
  Company Number: FR-JNJFOC-20130101721

PATIENT
  Age: 94 Year
  Sex: Female
  Weight: 38 kg

DRUGS (5)
  1. DUROGESIC [Suspect]
     Indication: PAIN
     Dosage: STARTED 4 YEARS EARLIER
     Route: 062
  2. VELCADE [Suspect]
     Indication: PLASMACYTOMA
     Route: 050
     Dates: start: 201211
  3. CORTISONE [Suspect]
     Indication: PLASMACYTOMA
     Route: 065
     Dates: start: 201211
  4. ACTISKENAN [Concomitant]
     Indication: PAIN
     Dosage: 3-5 TIMES A DAY
     Route: 048
  5. DAFALGAN [Concomitant]
     Indication: PAIN
     Route: 048

REACTIONS (6)
  - Lung disorder [Not Recovered/Not Resolved]
  - Hypoxia [Not Recovered/Not Resolved]
  - Anxiety [Not Recovered/Not Resolved]
  - Confusional state [Not Recovered/Not Resolved]
  - Herpes zoster [Not Recovered/Not Resolved]
  - Dyspnoea [Not Recovered/Not Resolved]
